FAERS Safety Report 5700464-7 (Version None)
Quarter: 2008Q2

REPORT INFORMATION
  Report Type: 
  Country: None (occurrence: None)
  Receive Date: 20080408
  Receipt Date: 20080408
  Transmission Date: 20081010
  Serious: Yes (Disabling)
  Sender: FDA-Public Use
  Company Number: None

PATIENT
  Age: 69 Year
  Sex: Female
  Weight: 155 kg

DRUGS (2)
  1. DORIPENEM   500MG   JNJ/ORTHO-MCNEILL [Suspect]
     Indication: COMPARTMENT SYNDROME
     Dosage: 250MG  Q12H  IV
     Route: 042
     Dates: start: 20080326, end: 20080328
  2. DORIPENEM   500MG   JNJ/ORTHO-MCNEILL [Suspect]
     Indication: FASCIOTOMY
     Dosage: 250MG  Q12H  IV
     Route: 042
     Dates: start: 20080326, end: 20080328

REACTIONS (1)
  - COMPLEX PARTIAL SEIZURES [None]
